FAERS Safety Report 7451854-6 (Version None)
Quarter: 2011Q2

REPORT INFORMATION
  Report Type: 
  Country: None (occurrence: None)
  Receive Date: 20110502
  Receipt Date: 20100514
  Transmission Date: 20111010
  Serious: No
  Sender: FDA-Public Use
  Company Number: US-ASTRAZENECA-2010SE22134

PATIENT
  Age: 82 Year
  Sex: Male
  Weight: 93 kg

DRUGS (3)
  1. MEDICATION FOR HIS ARTHRITIS [Concomitant]
  2. PRILOSEC OTC [Suspect]
     Route: 048
  3. NEXIUM [Suspect]
     Indication: DYSPEPSIA
     Route: 048
     Dates: end: 20090101

REACTIONS (3)
  - DRUG INEFFECTIVE [None]
  - MALAISE [None]
  - DRUG DOSE OMISSION [None]
